FAERS Safety Report 7951946-9 (Version None)
Quarter: 2011Q4

REPORT INFORMATION
  Report Type: 
  Country: None (occurrence: None)
  Receive Date: 20111201
  Receipt Date: 20111124
  Transmission Date: 20120403
  Serious: Yes (Other)
  Sender: FDA-Public Use
  Company Number: GB-PFIZER INC-2011288152

PATIENT
  Age: 33 Year
  Sex: Female

DRUGS (3)
  1. DICLOFENAC [Suspect]
     Indication: ABORTION INDUCED
     Dosage: 100 MG UNIT DOSE
     Route: 054
  2. MISOPROSTOL [Concomitant]
     Indication: ABORTION INDUCED
     Dosage: 200 UG UNIT DOSE
     Route: 067
  3. METRONIDAZOLE [Suspect]
     Indication: ABORTION INDUCED
     Dosage: 1 G UNIT DOSE
     Route: 054

REACTIONS (1)
  - DYSTONIA [None]
